FAERS Safety Report 5324370-5 (Version None)
Quarter: 2007Q2

REPORT INFORMATION
  Report Type: 
  Country: None (occurrence: None)
  Receive Date: 20070514
  Receipt Date: 20070502
  Transmission Date: 20071010
  Serious: Yes (Other)
  Sender: FDA-Public Use
  Company Number: FR-PFIZER INC-2007030680

PATIENT
  Sex: Female
  Weight: 70 kg

DRUGS (4)
  1. LYRICA [Suspect]
     Indication: EPICONDYLITIS
     Route: 048
     Dates: start: 20070126
  2. LYRICA [Suspect]
     Indication: PAIN
  3. KETOPROFEN [Concomitant]
     Route: 048
     Dates: start: 20070302, end: 20070312
  4. PARACETAMOL [Concomitant]
     Route: 048
     Dates: start: 20070302, end: 20070312

REACTIONS (3)
  - FALL [None]
  - MALAISE [None]
  - VERTIGO [None]
